FAERS Safety Report 25888853 (Version 1)
Quarter: 2025Q4

REPORT INFORMATION
  Report Type: Spontaneous
  Country: IL (occurrence: IL)
  Receive Date: 20251007
  Receipt Date: 20251007
  Transmission Date: 20260117
  Serious: Yes (Life-Threatening, Hospitalization)
  Sender: ACCORD
  Company Number: IL-MLMSERVICE-20250920-PI647992-00237-2

PATIENT
  Age: 10 Month
  Sex: Male

DRUGS (18)
  1. AMLODIPINE [Suspect]
     Active Substance: AMLODIPINE BESYLATE
     Indication: Hypertension
     Dosage: GIVEN AT DOSES HIGHER THAN STANDARD RECOMMENDATIONS
     Route: 048
  2. DOXAZOSIN [Suspect]
     Active Substance: DOXAZOSIN MESYLATE
     Indication: Hypertension
  3. CLONIDINE [Suspect]
     Active Substance: CLONIDINE
     Indication: Hypertension
     Dosage: GIVEN AT DOSES HIGHER THAN STANDARD RECOMMENDATIONS
     Route: 048
  4. ENALAPRIL [Suspect]
     Active Substance: ENALAPRIL
     Indication: Hypertension
     Dosage: GIVEN AT DOSES HIGHER THAN STANDARD RECOMMENDATIONS
     Route: 048
  5. HYDRALAZINE [Suspect]
     Active Substance: HYDRALAZINE HYDROCHLORIDE
     Indication: Hypertension
  6. LABETALOL [Suspect]
     Active Substance: LABETALOL
     Indication: Hypertension
  7. MINOXIDIL [Suspect]
     Active Substance: MINOXIDIL
     Indication: Hypertension
  8. NICARDIPINE [Suspect]
     Active Substance: NICARDIPINE
     Indication: Hypertension
  9. NIFEDIPINE [Suspect]
     Active Substance: NIFEDIPINE
     Indication: Hypertension
  10. NITROPRUSSIDE [Suspect]
     Active Substance: NITROPRUSSIDE
     Indication: Hypertension
  11. PHENTOLAMINE [Suspect]
     Active Substance: PHENTOLAMINE
     Indication: Hypertension
  12. INFLIXIMAB [Concomitant]
     Active Substance: INFLIXIMAB
     Indication: Takayasu^s arteritis
  13. METHYLPREDNISOLONE [Concomitant]
     Active Substance: METHYLPREDNISOLONE
     Indication: Takayasu^s arteritis
     Dosage: PULSES
  14. PREDNISOLONE [Concomitant]
     Active Substance: PREDNISOLONE
     Indication: Takayasu^s arteritis
     Route: 048
  15. LABETALOL [Suspect]
     Active Substance: LABETALOL
     Indication: Hypertension
     Dosage: GIVEN AT DOSES HIGHER THAN STANDARD RECOMMENDATIONS
     Route: 048
  16. HYDRALAZINE [Suspect]
     Active Substance: HYDRALAZINE HYDROCHLORIDE
     Indication: Hypertension
  17. HYDRALAZINE [Suspect]
     Active Substance: HYDRALAZINE HYDROCHLORIDE
     Indication: Hypertension
     Dosage: GIVEN AT DOSES HIGHER THAN STANDARD RECOMMENDATIONS
     Route: 048
  18. NIFEDIPINE [Suspect]
     Active Substance: NIFEDIPINE
     Indication: Hypertension
     Dosage: GIVEN AT DOSES HIGHER THAN STANDARD RECOMMENDATIONS
     Route: 048

REACTIONS (1)
  - Renal failure [Recovered/Resolved]
